FAERS Safety Report 7610266-2 (Version None)
Quarter: 2011Q3

REPORT INFORMATION
  Report Type: 
  Country: None (occurrence: None)
  Receive Date: 20110706
  Receipt Date: 20110624
  Transmission Date: 20111222
  Serious: Yes (Other)
  Sender: FDA-Public Use
  Company Number: 1000021215

PATIENT
  Age: 66 Year
  Sex: Male

DRUGS (7)
  1. SPIRIVA (TIOTROPIUM BROMIDE) (18 MICROGRAM) (TIOTROPIUM BROMIDE) [Concomitant]
  2. TILDIEM (DILTIAZEM HYDROCHLORIDE) (200 MILLIGRAM, CAPSULES) (DILTIAZEM [Concomitant]
  3. ROFLUMILAST (ROFLUMILAST) (500 MICROGRAM, TABLETS) [Suspect]
     Indication: CHRONIC OBSTRUCTIVE PULMONARY DISEASE
     Dosage: 500 MCG (500 MCG,1 IN 1 D),ORAL
     Route: 048
     Dates: start: 20110325, end: 20110415
  4. FOSTER (BECLOMETASONE DIPROPIONATE) (BECLOMETASONE DIPROPIONATE) [Concomitant]
  5. NEXIUM (40 MILLIGRAM, TABLETS) [Concomitant]
  6. APROVEL (IRBESARTAN) (150 MILLIGRAM, TABLETS) (IRBESARTAN) [Concomitant]
  7. AZITROPMYCINE (AZITHROMYCIN) (250 MILLIGRAM, TABLETS) (AZITHROMYCIN) [Concomitant]

REACTIONS (8)
  - BLINDNESS TRANSIENT [None]
  - MYALGIA [None]
  - HEADACHE [None]
  - EYE DISORDER [None]
  - TRANSIENT ISCHAEMIC ATTACK [None]
  - JOINT SWELLING [None]
  - CONSTIPATION [None]
  - DIZZINESS [None]
